FAERS Safety Report 16715705 (Version 2)
Quarter: 2019Q3

REPORT INFORMATION
  Report Type: Spontaneous
  Country: IE (occurrence: DE)
  Receive Date: 20190819
  Receipt Date: 20190827
  Transmission Date: 20191005
  Serious: Yes (Hospitalization, Other)
  Sender: FDA-Public Use
  Company Number: IE-PFIZER INC-2019347318

PATIENT
  Sex: Male

DRUGS (3)
  1. ALPROSTADIL. [Interacting]
     Active Substance: ALPROSTADIL
     Dosage: UNK
  2. VIAGRA [Suspect]
     Active Substance: SILDENAFIL CITRATE
     Dosage: UNK
  3. KETAMINE HCL [Concomitant]
     Active Substance: KETAMINE HYDROCHLORIDE

REACTIONS (6)
  - Penile pain [Unknown]
  - Drug interaction [Unknown]
  - Priapism [Unknown]
  - Thrombosis [Unknown]
  - Prescription drug used without a prescription [Unknown]
  - Loss of consciousness [Unknown]

NARRATIVE: CASE EVENT DATE: 2019
